FAERS Safety Report 19014803 (Version 2)
Quarter: 2021Q2

REPORT INFORMATION
  Report Type: Spontaneous
  Country: US (occurrence: US)
  Receive Date: 20210317
  Receipt Date: 20210423
  Transmission Date: 20210717
  Serious: No
  Sender: FDA-Public Use
  Company Number: US-ASTRAZENECA-2021A085065

PATIENT
  Sex: Male
  Weight: 68 kg

DRUGS (7)
  1. SYMBICORT [Suspect]
     Active Substance: BUDESONIDE\FORMOTEROL FUMARATE DIHYDRATE
     Indication: EMPHYSEMA
     Dosage: 160/4.5MCG 2 PUFFS TWICE A DAY THEN 2 PUFFS ONCE A DAY AS NEEDED
     Route: 055
     Dates: end: 2020
  2. SYMBICORT [Suspect]
     Active Substance: BUDESONIDE\FORMOTEROL FUMARATE DIHYDRATE
     Indication: ASTHMA
     Dosage: 160/4.5MCG 2 PUFFS TWICE A DAY THEN 2 PUFFS ONCE A DAY AS NEEDED
     Route: 055
     Dates: start: 20210207
  3. SYMBICORT [Suspect]
     Active Substance: BUDESONIDE\FORMOTEROL FUMARATE DIHYDRATE
     Indication: BRONCHITIS
     Dosage: 160/4.5MCG 2 PUFFS TWICE A DAY THEN 2 PUFFS ONCE A DAY AS NEEDED
     Route: 055
     Dates: end: 2020
  4. BUDESONIDE AND FORMOTEROL AEROSOL [Suspect]
     Active Substance: BUDESONIDE\FORMOTEROL FUMARATE DIHYDRATE
     Indication: CHRONIC OBSTRUCTIVE PULMONARY DISEASE
     Dosage: 160/4.5MCG 2 PUFFS TWICE A DAY THEN 2 PUFFS ONCE A DAY AS NEEDED
     Route: 055
  5. SYMBICORT [Suspect]
     Active Substance: BUDESONIDE\FORMOTEROL FUMARATE DIHYDRATE
     Indication: EMPHYSEMA
     Dosage: 160/4.5MCG 2 PUFFS TWICE A DAY THEN 2 PUFFS ONCE A DAY AS NEEDED
     Route: 055
     Dates: start: 20210207
  6. SYMBICORT [Suspect]
     Active Substance: BUDESONIDE\FORMOTEROL FUMARATE DIHYDRATE
     Indication: ASTHMA
     Dosage: 160/4.5MCG 2 PUFFS TWICE A DAY THEN 2 PUFFS ONCE A DAY AS NEEDED
     Route: 055
     Dates: end: 2020
  7. SYMBICORT [Suspect]
     Active Substance: BUDESONIDE\FORMOTEROL FUMARATE DIHYDRATE
     Indication: BRONCHITIS
     Dosage: 160/4.5MCG 2 PUFFS TWICE A DAY THEN 2 PUFFS ONCE A DAY AS NEEDED
     Route: 055
     Dates: start: 20210207

REACTIONS (3)
  - Incorrect dose administered by device [Unknown]
  - Cataract [Unknown]
  - Eye disorder [Unknown]
